FAERS Safety Report 18818378 (Version 2)
Quarter: 2021Q1

REPORT INFORMATION
  Report Type: Report from Study
  Country: US (occurrence: US)
  Receive Date: 20210201
  Receipt Date: 20210308
  Transmission Date: 20210419
  Serious: Yes (Death, Hospitalization)
  Sender: FDA-Public Use
  Company Number: NVSC2021US023115

PATIENT
  Age: 14 Year
  Sex: Female
  Weight: 40.8 kg

DRUGS (4)
  1. CELEBREX [Concomitant]
     Active Substance: CELECOXIB
     Indication: PRODUCT USED FOR UNKNOWN INDICATION
     Dosage: UNK, BID (100)
     Route: 065
  2. TEMODAR [Concomitant]
     Active Substance: TEMOZOLOMIDE
     Indication: PRODUCT USED FOR UNKNOWN INDICATION
     Dosage: 270 MG, QD (5 DAYS EACH MONTH)
     Route: 065
  3. MEKINIST [Suspect]
     Active Substance: TRAMETINIB DIMETHYL SULFOXIDE
     Indication: BRAIN NEOPLASM
     Dosage: UNK UNK, QD
     Route: 048
     Dates: start: 201912, end: 20200427
  4. PALBOCICLIB [Concomitant]
     Active Substance: PALBOCICLIB
     Indication: PRODUCT USED FOR UNKNOWN INDICATION
     Dosage: 100 MG, CYCLIC (1?21 OF EACH 28 DAYS)
     Route: 048

REACTIONS (5)
  - Malignant neoplasm progression [Fatal]
  - Brain neoplasm [Fatal]
  - Product use in unapproved indication [Unknown]
  - Tumour haemorrhage [Recovering/Resolving]
  - Headache [Fatal]

NARRATIVE: CASE EVENT DATE: 201912
